FAERS Safety Report 21862508 (Version 1)
Quarter: 2023Q1

REPORT INFORMATION
  Report Type: Spontaneous
  Country: JP (occurrence: JP)
  Receive Date: 20230114
  Receipt Date: 20230114
  Transmission Date: 20230417
  Serious: Yes (Other)
  Sender: FDA-Public Use
  Company Number: JP-Teva Takeda Yakuhin-2023-JP-000109J

PATIENT
  Age: 8 Decade
  Sex: Male

DRUGS (1)
  1. ACTOS [Suspect]
     Active Substance: PIOGLITAZONE HYDROCHLORIDE
     Indication: Hyperglycaemia
     Dosage: DOSAGE IS UNKNOWN.
     Route: 048
     Dates: end: 2017

REACTIONS (5)
  - Syncope [Recovered/Resolved]
  - Vision blurred [Unknown]
  - Blood uric acid increased [Unknown]
  - Myalgia [Unknown]
  - Therapy cessation [Unknown]

NARRATIVE: CASE EVENT DATE: 20170101
